FAERS Safety Report 24654904 (Version 2)
Quarter: 2024Q4

REPORT INFORMATION
  Report Type: Report from Study
  Country: CN (occurrence: CN)
  Receive Date: 20241122
  Receipt Date: 20241210
  Transmission Date: 20250114
  Serious: Yes (Other)
  Sender: GILEAD
  Company Number: CN-FOSUNKITE-FOSUNKITE-20220602

PATIENT
  Age: 68 Year
  Sex: Male

DRUGS (5)
  1. AXICABTAGENE CILOLEUCEL [Suspect]
     Active Substance: AXICABTAGENE CILOLEUCEL
     Indication: Non-Hodgkin^s lymphoma
     Dosage: 1.3*10^8 CELLS (NUMBER OF CAR-T CELLS)
     Route: 065
     Dates: start: 20221105, end: 20221105
  2. FLUDARABINE [Suspect]
     Active Substance: FLUDARABINE PHOSPHATE
     Indication: Lymphodepletion
     Dosage: 50 MG
     Route: 041
     Dates: start: 20221031, end: 20221102
  3. CYCLOPHOSPHAMIDE [Suspect]
     Active Substance: CYCLOPHOSPHAMIDE
     Indication: Lymphodepletion
     Dosage: 860 MG
     Route: 041
     Dates: start: 20221031, end: 20221102
  4. ZANUBRUTINIB [Concomitant]
     Active Substance: ZANUBRUTINIB
     Indication: Non-Hodgkin^s lymphoma
     Dosage: ACCUMULATED DOSE AND TREATMENT CYCLE WERE UNKNOWN
     Route: 048
     Dates: start: 20221106
  5. ZANUBRUTINIB [Concomitant]
     Active Substance: ZANUBRUTINIB
     Dosage: ACCUMULATED DOSE AND TREATMENT CYCLE WERE UNKNOWN
     Route: 048
     Dates: start: 20221026, end: 20221105

REACTIONS (43)
  - Bronchiectasis [Recovered/Resolved]
  - Cytokine release syndrome [Recovered/Resolved]
  - Cytokine increased [Recovering/Resolving]
  - White blood cell count decreased [Recovered/Resolved]
  - Neutrophil count decreased [Recovered/Resolved]
  - Lymphocyte count decreased [Recovered/Resolved]
  - Anaemia [Recovered/Resolved]
  - Platelet count decreased [Recovered/Resolved]
  - Hypoalbuminaemia [Recovered/Resolved]
  - Blood immunoglobulin G decreased [Recovering/Resolving]
  - C-reactive protein increased [Recovered/Resolved]
  - Hypomagnesaemia [Recovered/Resolved]
  - Hypophosphataemia [Recovered/Resolved]
  - Insomnia [Recovered/Resolved]
  - Pain [Recovered/Resolved]
  - Chest pain [Recovered/Resolved]
  - Chest pain [Recovered/Resolved]
  - Chest discomfort [Recovered/Resolved]
  - Pain in extremity [Recovered/Resolved]
  - Pain in extremity [Recovered/Resolved]
  - Pain in extremity [Recovered/Resolved]
  - Pain in extremity [Recovered/Resolved]
  - Decreased appetite [Recovered/Resolved]
  - Abdominal discomfort [Recovered/Resolved]
  - Asthenia [Recovered/Resolved]
  - Hypoaesthesia [Recovered/Resolved]
  - Hypoalbuminaemia [Recovered/Resolved]
  - Alanine aminotransferase increased [Recovered/Resolved]
  - Blood alkaline phosphatase increased [Recovered/Resolved]
  - N-terminal prohormone brain natriuretic peptide increased [Recovered/Resolved]
  - Gamma-glutamyltransferase increased [Recovering/Resolving]
  - Herpes zoster [Recovered/Resolved]
  - Post herpetic neuralgia [Not Recovered/Not Resolved]
  - Pyrexia [Recovered/Resolved]
  - Cough [Recovered/Resolved]
  - Productive cough [Recovered/Resolved]
  - Chest discomfort [Recovered/Resolved]
  - Bronchiectasis [Recovered/Resolved]
  - Chest discomfort [Recovered/Resolved]
  - Serum ferritin increased [Recovered/Resolved]
  - COVID-19 [Recovered/Resolved]
  - Upper respiratory tract infection [Recovered/Resolved]
  - Respiratory tract infection [Recovered/Resolved]

NARRATIVE: CASE EVENT DATE: 20221105
